FAERS Safety Report 8021949-7 (Version None)
Quarter: 2012Q1

REPORT INFORMATION
  Report Type: 
  Country: None (occurrence: None)
  Receive Date: 20120104
  Receipt Date: 20111222
  Transmission Date: 20120608
  Serious: Yes (Hospitalization)
  Sender: FDA-Public Use
  Company Number: PHHY2011FR113965

PATIENT
  Sex: Male

DRUGS (1)
  1. VANCOMYCIN HCL [Suspect]
     Indication: BONE GRAFT
     Dosage: 1 G, QD
     Route: 042
     Dates: start: 20111007, end: 20111007

REACTIONS (8)
  - ATRIAL FIBRILLATION [None]
  - TACHYCARDIA [None]
  - RASH [None]
  - VOMITING [None]
  - HYPOTENSION [None]
  - ARRHYTHMIA [None]
  - RED MAN SYNDROME [None]
  - INCORRECT DRUG ADMINISTRATION RATE [None]
